FAERS Safety Report 13198095 (Version 3)
Quarter: 2017Q1

REPORT INFORMATION
  Report Type: Spontaneous
  Country: CA (occurrence: CA)
  Receive Date: 20170208
  Receipt Date: 20170331
  Transmission Date: 20170428
  Serious: Yes (Other)
  Sender: FDA-Public Use
  Company Number: CA-AMGEN-CANSP2017017997

PATIENT
  Age: 60 Year
  Sex: Female
  Weight: 65.76 kg

DRUGS (6)
  1. PROLIA [Suspect]
     Active Substance: DENOSUMAB
     Indication: OSTEOPOROSIS POSTMENOPAUSAL
     Dosage: 60 MG, Q6MO
     Route: 058
     Dates: start: 20161027
  2. CRESTOR [Concomitant]
     Active Substance: ROSUVASTATIN CALCIUM
     Indication: DYSLIPIDAEMIA
     Dosage: 10 MG, QD
     Dates: start: 20101111
  3. ASA [Concomitant]
     Active Substance: ASPIRIN
     Indication: EMBOLISM ARTERIAL
     Dosage: 81 MG, UNK
     Dates: start: 2002
  4. CALCIUM [Concomitant]
     Active Substance: CALCIUM
  5. KENALOG [Concomitant]
     Active Substance: TRIAMCINOLONE ACETONIDE
  6. VITAMIN D [Concomitant]
     Active Substance: CHOLECALCIFEROL

REACTIONS (4)
  - Osteonecrosis of jaw [Not Recovered/Not Resolved]
  - Burn oral cavity [Unknown]
  - Impaired healing [Unknown]
  - Palatal disorder [Not Recovered/Not Resolved]

NARRATIVE: CASE EVENT DATE: 201612
